FAERS Safety Report 8394508-4 (Version None)
Quarter: 2012Q2

REPORT INFORMATION
  Report Type: 
  Country: None (occurrence: None)
  Receive Date: 20120530
  Receipt Date: 20120517
  Transmission Date: 20120825
  Serious: Yes (Hospitalization, Other)
  Sender: FDA-Public Use
  Company Number: US-ELI_LILLY_AND_COMPANY-US201204002035

PATIENT
  Sex: Female

DRUGS (3)
  1. ANALGESICS [Concomitant]
     Indication: PAIN
  2. FORTEO [Suspect]
     Indication: OSTEOPOROSIS
     Dosage: 20 UG, QD
     Route: 065
  3. FORTEO [Suspect]
     Dosage: 20 UG, QD
     Route: 065

REACTIONS (3)
  - FEMUR FRACTURE [None]
  - FALL [None]
  - JOINT RANGE OF MOTION DECREASED [None]
